FAERS Safety Report 12049155 (Version 1)
Quarter: 2016Q1

REPORT INFORMATION
  Report Type: Spontaneous
  Country: US (occurrence: US)
  Receive Date: 20160209
  Receipt Date: 20160209
  Transmission Date: 20160526
  Serious: No
  Sender: FDA-Public Use
  Company Number: US-ABBVIE-15P-163-1423574-00

PATIENT

DRUGS (3)
  1. HUMIRA [Suspect]
     Active Substance: ADALIMUMAB
     Indication: COLITIS
     Dosage: FIRST DOSE
     Route: 065
     Dates: start: 2014, end: 2014
  2. HUMIRA [Suspect]
     Active Substance: ADALIMUMAB
     Dosage: SECOND DOSE
     Route: 065
     Dates: start: 2014, end: 2014
  3. SIMPONI [Suspect]
     Active Substance: GOLIMUMAB
     Indication: COLITIS
     Route: 065
     Dates: start: 2014

REACTIONS (8)
  - Hypersensitivity [Unknown]
  - Feeling cold [Recovered/Resolved]
  - Joint stiffness [Recovered/Resolved]
  - Joint stiffness [Unknown]
  - Pyrexia [Recovered/Resolved]
  - Feeling cold [Unknown]
  - Anaphylactoid reaction [Unknown]
  - Pyrexia [Unknown]

NARRATIVE: CASE EVENT DATE: 2014
